FAERS Safety Report 7664056-5 (Version None)
Quarter: 2011Q3

REPORT INFORMATION
  Report Type: 
  Country: None (occurrence: None)
  Receive Date: 20110805
  Receipt Date: 20100803
  Transmission Date: 20111222
  Serious: No
  Sender: FDA-Public Use
  Company Number: US-ABBOTT-10P-163-0661729-00

PATIENT
  Sex: Female

DRUGS (3)
  1. NIASPAN [Suspect]
     Indication: BLOOD CHOLESTEROL INCREASED
     Dosage: 3-500 MG TABS DAILY
     Dates: start: 20091201, end: 20100701
  2. NIASPAN [Suspect]
  3. NIASPAN [Suspect]
     Dates: start: 20100601

REACTIONS (5)
  - ABDOMINAL DISCOMFORT [None]
  - FATIGUE [None]
  - MALAISE [None]
  - DECREASED APPETITE [None]
  - BRONCHITIS [None]
